FAERS Safety Report 21559624 (Version 2)
Quarter: 2023Q1

REPORT INFORMATION
  Report Type: Report from Study
  Country: JP (occurrence: JP)
  Receive Date: 20221107
  Receipt Date: 20230224
  Transmission Date: 20230417
  Serious: Yes (Hospitalization, Other)
  Sender: FDA-Public Use
  Company Number: JP-GSK-JP2022JPN157330

PATIENT

DRUGS (1)
  1. SOTROVIMAB [Suspect]
     Active Substance: SOTROVIMAB
     Indication: COVID-19
     Dosage: 500MG/50ML/30MIN
     Route: 041
     Dates: start: 20220115, end: 20220115

REACTIONS (2)
  - Herpes zoster disseminated [Recovered/Resolved with Sequelae]
  - Chronic allograft nephropathy [Unknown]

NARRATIVE: CASE EVENT DATE: 20220101
